FAERS Safety Report 16906458 (Version 1)
Quarter: 2019Q4

REPORT INFORMATION
  Report Type: Spontaneous
  Country: US (occurrence: US)
  Receive Date: 20191011
  Receipt Date: 20191011
  Transmission Date: 20200122
  Serious: No
  Sender: FDA-Public Use
  Company Number: US-ASTRAZENECA-2019SF32059

PATIENT

DRUGS (2)
  1. VENTOLIN [Concomitant]
     Active Substance: ALBUTEROL SULFATE
  2. SYMBICORT [Suspect]
     Active Substance: BUDESONIDE\FORMOTEROL FUMARATE DIHYDRATE
     Indication: ASTHMA
     Dosage: UNKNOWN UNKNOWN
     Route: 055

REACTIONS (5)
  - Product dose omission [Unknown]
  - Chest discomfort [Unknown]
  - Therapy cessation [Unknown]
  - Dyspnoea [Unknown]
  - Insomnia [Unknown]
